FAERS Safety Report 6717659-6 (Version None)
Quarter: 2010Q2

REPORT INFORMATION
  Report Type: 
  Country: None (occurrence: None)
  Receive Date: 20100510
  Receipt Date: 20100428
  Transmission Date: 20101027
  Serious: Yes (Other)
  Sender: FDA-Public Use
  Company Number: FI-PFIZER INC-2007078093

PATIENT
  Age: 46 Year
  Sex: Male

DRUGS (15)
  1. CHAMPIX [Interacting]
     Indication: NICOTINE DEPENDENCE
     Dosage: 1 MG, 2X/DAY
     Route: 048
     Dates: start: 20070709, end: 20071101
  2. CHAMPIX [Interacting]
     Dosage: 0.5 MG, 1X/DAY
     Route: 048
     Dates: start: 20070702, end: 20070704
  3. CHAMPIX [Interacting]
     Dosage: 0.5 MG, 2X/DAY
     Route: 048
     Dates: start: 20070705, end: 20070708
  4. AMOXIL [Interacting]
     Indication: SINUSITIS
     Dosage: UNK
     Route: 048
     Dates: start: 20071105, end: 20071109
  5. AMOXIL [Interacting]
     Indication: INFLUENZA
  6. NICORETTE [Suspect]
     Indication: SMOKING CESSATION THERAPY
     Dosage: 2 MG, UNK
     Dates: start: 20060101, end: 20070101
  7. RINEXIN [Interacting]
     Dosage: 50 MG, UNK
     Route: 048
     Dates: start: 20071105, end: 20071101
  8. NICORETTE [Suspect]
     Dosage: UNK
     Dates: start: 20060101
  9. SERTRALINE [Suspect]
     Dosage: 50MG 1/2 TABLET DAILY
     Dates: start: 20090301
  10. CIPRALEX [Suspect]
     Dosage: UNK
     Dates: start: 20071218
  11. AZITHROMYCIN [Concomitant]
     Indication: INFLUENZA
     Dosage: 3
     Route: 048
     Dates: start: 20071024, end: 20071001
  12. DOXIMYCIN [Concomitant]
     Indication: OROPHARYNGEAL PAIN
     Dosage: UNK
     Route: 048
     Dates: start: 20071001, end: 20070101
  13. CLARITHROMYCIN [Concomitant]
     Indication: ACUTE SINUSITIS
     Dosage: TEN DAYS COURSE
     Route: 048
     Dates: start: 20071111, end: 20071101
  14. HAVRIX [Concomitant]
     Dosage: UNK
     Route: 030
     Dates: start: 20070629, end: 20070629
  15. TOCLASE [Concomitant]
     Dosage: UNK
     Dates: start: 20071001

REACTIONS (46)
  - ABDOMINAL DISCOMFORT [None]
  - ACTIVITIES OF DAILY LIVING IMPAIRED [None]
  - ACUTE SINUSITIS [None]
  - ADJUSTMENT DISORDER WITH MIXED ANXIETY AND DEPRESSED MOOD [None]
  - AGGRESSION [None]
  - AGITATION [None]
  - ANXIETY [None]
  - BLOOD CHOLESTEROL INCREASED [None]
  - BLOOD GLUCOSE INCREASED [None]
  - CONFUSIONAL STATE [None]
  - DEPRESSION [None]
  - DIZZINESS [None]
  - DRUG INTERACTION [None]
  - DYSPNOEA [None]
  - ERYTHEMA [None]
  - EUPHORIC MOOD [None]
  - FATIGUE [None]
  - HALLUCINATION [None]
  - HEPATIC STEATOSIS [None]
  - HYPERSENSITIVITY [None]
  - HYPOSMIA [None]
  - HYPOTHYROIDISM [None]
  - INCREASED APPETITE [None]
  - INFECTION [None]
  - INFLUENZA [None]
  - IRRITABILITY [None]
  - LOWER RESPIRATORY TRACT INFECTION [None]
  - MEDICATION ERROR [None]
  - MEMORY IMPAIRMENT [None]
  - MOOD SWINGS [None]
  - MUSCULOSKELETAL DISCOMFORT [None]
  - NAUSEA [None]
  - NIGHTMARE [None]
  - OVERWEIGHT [None]
  - PALPITATIONS [None]
  - PANIC REACTION [None]
  - RESTLESSNESS [None]
  - SENSE OF OPPRESSION [None]
  - SLEEP DISORDER [None]
  - SWELLING [None]
  - TINNITUS [None]
  - UPPER RESPIRATORY TRACT INFECTION [None]
  - VASODILATATION [None]
  - VERTIGO [None]
  - WEIGHT INCREASED [None]
  - WITHDRAWAL SYNDROME [None]
